FAERS Safety Report 13784695 (Version 1)
Quarter: 2017Q3

REPORT INFORMATION
  Report Type: Spontaneous
  Country: JP (occurrence: JP)
  Receive Date: 20170725
  Receipt Date: 20170725
  Transmission Date: 20171127
  Serious: Yes (Death, Other)
  Sender: FDA-Public Use
  Company Number: JP-CIPLA LTD.-2017JP13358

PATIENT

DRUGS (8)
  1. GEMCITABINE [Suspect]
     Active Substance: GEMCITABINE\GEMCITABINE HYDROCHLORIDE
     Indication: ADJUVANT THERAPY
     Dosage: UNK
     Route: 065
  2. EPIRUBICIN [Suspect]
     Active Substance: EPIRUBICIN
     Indication: ADJUVANT THERAPY
     Dosage: UNK
     Route: 065
  3. NEDAPLATIN [Suspect]
     Active Substance: NEDAPLATIN
     Indication: ADJUVANT THERAPY
     Dosage: UNK
     Route: 065
  4. ZOLEDRONIC ACID [Suspect]
     Active Substance: ZOLEDRONIC ACID
     Indication: TRANSITIONAL CELL CARCINOMA
     Dosage: UNK
     Route: 065
  5. METHOTREXATE. [Suspect]
     Active Substance: METHOTREXATE
     Indication: ADJUVANT THERAPY
     Dosage: UNK
     Route: 065
  6. ZOLEDRONIC ACID [Suspect]
     Active Substance: ZOLEDRONIC ACID
     Indication: METASTASES TO BONE MARROW
  7. PIRARUBICIN [Suspect]
     Active Substance: PIRARUBICIN
     Indication: BLADDER NEOPLASM
     Dosage: THP 30 MG IN 30 ML OF SALINE
     Route: 043
  8. CISPLATIN. [Suspect]
     Active Substance: CISPLATIN
     Indication: ADJUVANT THERAPY
     Dosage: UNK
     Route: 065

REACTIONS (3)
  - Bladder cancer recurrent [Unknown]
  - Death [Fatal]
  - Metastases to bone marrow [Unknown]
